FAERS Safety Report 19954255 (Version 2)
Quarter: 2023Q1

REPORT INFORMATION
  Report Type: Spontaneous
  Country: PT (occurrence: PT)
  Receive Date: 20211014
  Receipt Date: 20230210
  Transmission Date: 20230417
  Serious: Yes (Hospitalization, Other)
  Sender: FDA-Public Use
  Company Number: PT-MLMSERVICE-20211001-3142022-1

PATIENT
  Age: 26 Year
  Sex: Female

DRUGS (4)
  1. PHENYLEPHRINE HYDROCHLORIDE [Suspect]
     Active Substance: PHENYLEPHRINE HYDROCHLORIDE
     Indication: Product used for unknown indication
     Dosage: 2 MG INADVERTENTLY DUE TO A DILUTION ERROR, SYRINGE CONTAINING 1 MG/ML WAS USED
  2. BUPIVACAINE [Suspect]
     Active Substance: BUPIVACAINE
     Indication: Nerve block
     Dosage: 8 MG OF BUPIVACAINE 0.5%
  3. SUFENTANIL [Suspect]
     Active Substance: SUFENTANIL
     Indication: Nerve block
  4. EPHEDRINE [Suspect]
     Active Substance: EPHEDRINE

REACTIONS (15)
  - Nausea [Recovered/Resolved]
  - Hypotension [Recovered/Resolved]
  - Myocardial necrosis marker increased [Recovered/Resolved]
  - Acute pulmonary oedema [Recovered/Resolved]
  - Maternal exposure during pregnancy [Unknown]
  - Headache [Recovered/Resolved]
  - Ventricular hypokinesia [Recovered/Resolved]
  - Cough [Recovered/Resolved]
  - Pulmonary arterial wedge pressure increased [Recovered/Resolved]
  - Haemorrhage [Recovered/Resolved]
  - Bradycardia [Recovered/Resolved]
  - Product preparation issue [Unknown]
  - Sinus tachycardia [Recovered/Resolved]
  - Accidental overdose [Unknown]
  - Pleural effusion [Recovered/Resolved]
